FAERS Safety Report 4350289-2 (Version None)
Quarter: 2004Q2

REPORT INFORMATION
  Report Type: 
  Country: None (occurrence: None)
  Receive Date: 20040429
  Receipt Date: 20030806
  Transmission Date: 20050107
  Serious: Yes (Hospitalization, Disabling)
  Sender: FDA-Public Use
  Company Number: US-MERCK-0308USA00751

PATIENT
  Age: 50 Year
  Sex: Male
  Weight: 77 kg

DRUGS (11)
  1. VICODIN ES [Concomitant]
     Route: 048
     Dates: end: 20010723
  2. PERCOCET [Concomitant]
     Route: 048
  3. CEFTIN [Concomitant]
     Route: 048
  4. CLARITIN-D [Suspect]
     Route: 048
     Dates: end: 20010723
  5. VIOXX [Suspect]
     Indication: OSTEOARTHRITIS
     Route: 048
     Dates: start: 20010410, end: 20010101
  6. VIOXX [Suspect]
     Route: 048
     Dates: start: 20010101, end: 20010723
  7. VIOXX [Suspect]
     Indication: CARPAL TUNNEL SYNDROME
     Route: 048
     Dates: start: 20010410, end: 20010101
  8. VIOXX [Suspect]
     Route: 048
     Dates: start: 20010101, end: 20010723
  9. ZOLOFT [Concomitant]
     Route: 048
  10. ZOLOFT [Concomitant]
     Route: 048
     Dates: end: 20010701
  11. AMBIEN [Concomitant]
     Route: 048
     Dates: end: 20010701

REACTIONS (17)
  - ACUTE MYOCARDIAL INFARCTION [None]
  - ANGINA PECTORIS [None]
  - AORTIC VALVE INCOMPETENCE [None]
  - AORTIC VALVE SCLEROSIS [None]
  - BLOOD BILIRUBIN INCREASED [None]
  - BLOOD CHOLESTEROL INCREASED [None]
  - CARPAL TUNNEL SYNDROME [None]
  - CORONARY ARTERY DISEASE [None]
  - EMOTIONAL DISTRESS [None]
  - GALLOP RHYTHM PRESENT [None]
  - HYPERTENSION [None]
  - HYPERTENSIVE HEART DISEASE [None]
  - MITRAL VALVE PROLAPSE [None]
  - MYOCARDIAL ISCHAEMIA [None]
  - SLEEP APNOEA SYNDROME [None]
  - THROMBOSIS [None]
  - TRIGGER FINGER [None]
